FAERS Safety Report 6310789-2 (Version None)
Quarter: 2009Q3

REPORT INFORMATION
  Report Type: 
  Country: None (occurrence: None)
  Receive Date: 20090812
  Receipt Date: 20090803
  Transmission Date: 20100115
  Serious: Yes (Hospitalization, Other)
  Sender: FDA-Public Use
  Company Number: 2009-03131

PATIENT
  Age: 63 Year
  Sex: Male

DRUGS (6)
  1. VELCADE [Suspect]
     Indication: DRUG USE FOR UNKNOWN INDICATION
  2. REVLIMID [Suspect]
     Indication: MULTIPLE MYELOMA
     Dosage: 25 MG, UNK, UNK
     Dates: start: 20090112, end: 20090122
  3. ATIVAN [Concomitant]
  4. LEXAPRO [Concomitant]
  5. NEURONTIN [Concomitant]
  6. PRILOSEC [Concomitant]

REACTIONS (12)
  - DEHYDRATION [None]
  - DIARRHOEA [None]
  - ELECTROLYTE DEPLETION [None]
  - EXOSTOSIS [None]
  - HYPOVOLAEMIA [None]
  - MUSCULAR WEAKNESS [None]
  - NEUROPATHY PERIPHERAL [None]
  - OEDEMA [None]
  - PLATELET COUNT DECREASED [None]
  - REFUSAL OF TREATMENT BY PATIENT [None]
  - RENAL FAILURE ACUTE [None]
  - VOMITING [None]
